FAERS Safety Report 8974233 (Version 1)
Quarter: 2012Q4

REPORT INFORMATION
  Report Type: Spontaneous
  Country: US (occurrence: None)
  Receive Date: 20121217
  Receipt Date: 20121217
  Transmission Date: 20130627
  Serious: Yes (Life-Threatening)
  Sender: FDA-Public Use
  Company Number: None

PATIENT
  Age: 84 Year
  Sex: Female
  Weight: 58.97 kg

DRUGS (1)
  1. PRADAXA [Suspect]

REACTIONS (1)
  - Gastrointestinal haemorrhage [None]
